FAERS Safety Report 5043679-6 (Version None)
Quarter: 2006Q2

REPORT INFORMATION
  Report Type: 
  Country: None (occurrence: None)
  Receive Date: 20060601
  Receipt Date: 20060127
  Transmission Date: 20061013
  Serious: No
  Sender: FDA-Public Use
  Company Number: 2006PV007757

PATIENT
  Sex: Female

DRUGS (8)
  1. BYETTA [Suspect]
     Indication: DRUG USE FOR UNKNOWN INDICATION
     Dosage: 10 MCG; BID; SC
     Route: 058
     Dates: start: 20051013, end: 20060103
  2. PREMPRO [Concomitant]
  3. STARLIX [Concomitant]
  4. NEXIUM [Concomitant]
  5. AVANDAMET [Concomitant]
  6. LIPITOR [Concomitant]
  7. LANTUS [Concomitant]
  8. MULTVERT [Concomitant]

REACTIONS (2)
  - INJECTION SITE ERYTHEMA [None]
  - INJECTION SITE RASH [None]
